FAERS Safety Report 5297668-7 (Version None)
Quarter: 2007Q2

REPORT INFORMATION
  Report Type: 
  Country: None (occurrence: None)
  Receive Date: 20070409
  Receipt Date: 20070328
  Transmission Date: 20071010
  Serious: Yes (Other)
  Sender: FDA-Public Use
  Company Number: CHNY2007JP00884

PATIENT
  Age: 45 Year
  Sex: Female

DRUGS (2)
  1. NICOTINE [Suspect]
     Indication: SMOKING CESSATION THERAPY
     Dosage: SEE IMAGE
     Route: 062
     Dates: start: 20070111, end: 20070207
  2. NICOTINE [Suspect]
     Indication: SMOKING CESSATION THERAPY
     Dosage: SEE IMAGE
     Route: 062
     Dates: start: 20070208, end: 20070209

REACTIONS (7)
  - APPLICATION SITE DISCOLOURATION [None]
  - APPLICATION SITE EROSION [None]
  - APPLICATION SITE ERYTHEMA [None]
  - APPLICATION SITE PRURITUS [None]
  - APPLICATION SITE SCAR [None]
  - APPLICATION SITE VESICLES [None]
  - DERMATITIS CONTACT [None]
